FAERS Safety Report 17025312 (Version 1)
Quarter: 2019Q4

REPORT INFORMATION
  Report Type: Spontaneous
  Country: US (occurrence: US)
  Receive Date: 20191112
  Receipt Date: 20191112
  Transmission Date: 20200122
  Serious: Yes (Hospitalization)
  Sender: FDA-Public Use
  Company Number: None

PATIENT
  Age: 75 Year
  Sex: Male
  Weight: 87.75 kg

DRUGS (2)
  1. IBUPROFEN. [Concomitant]
     Active Substance: IBUPROFEN
  2. XARELTO [Suspect]
     Active Substance: RIVAROXABAN
     Dates: start: 20191023, end: 20191104

REACTIONS (5)
  - Chills [None]
  - Back pain [None]
  - Arthralgia [None]
  - Headache [None]
  - Dysuria [None]

NARRATIVE: CASE EVENT DATE: 20191023
